FAERS Safety Report 23454359 (Version 1)
Quarter: 2024Q1

REPORT INFORMATION
  Report Type: Spontaneous
  Country: US (occurrence: US)
  Receive Date: 20240130
  Receipt Date: 20240130
  Transmission Date: 20240410
  Serious: No
  Sender: FDA-Public Use
  Company Number: US-ELI_LILLY_AND_COMPANY-US202401013392

PATIENT
  Sex: Male

DRUGS (9)
  1. MOUNJARO [Suspect]
     Active Substance: TIRZEPATIDE
     Indication: Type 2 diabetes mellitus
     Dosage: 2.5 MG, UNKNOWN
     Route: 065
     Dates: start: 202401
  2. MOUNJARO [Suspect]
     Active Substance: TIRZEPATIDE
     Indication: Type 2 diabetes mellitus
     Dosage: 2.5 MG, UNKNOWN
     Route: 065
     Dates: start: 202401
  3. MOUNJARO [Suspect]
     Active Substance: TIRZEPATIDE
     Indication: Type 2 diabetes mellitus
     Dosage: 2.5 MG, UNKNOWN
     Route: 065
     Dates: start: 202401
  4. MOUNJARO [Suspect]
     Active Substance: TIRZEPATIDE
     Indication: Type 2 diabetes mellitus
     Dosage: 2.5 MG, UNKNOWN
     Route: 065
     Dates: start: 202401
  5. MOUNJARO [Suspect]
     Active Substance: TIRZEPATIDE
     Indication: Vascular malformation
  6. MOUNJARO [Suspect]
     Active Substance: TIRZEPATIDE
     Indication: Vascular malformation
  7. MOUNJARO [Suspect]
     Active Substance: TIRZEPATIDE
     Indication: Vascular malformation
  8. MOUNJARO [Suspect]
     Active Substance: TIRZEPATIDE
     Indication: Vascular malformation
  9. JARDIANCE [Concomitant]
     Active Substance: EMPAGLIFLOZIN
     Indication: Product used for unknown indication

REACTIONS (3)
  - Weight increased [Unknown]
  - Hyperphagia [Unknown]
  - Incorrect dose administered [Unknown]

NARRATIVE: CASE EVENT DATE: 20240101
